FAERS Safety Report 25063973 (Version 1)
Quarter: 2025Q1

REPORT INFORMATION
  Report Type: Spontaneous
  Country: CA (occurrence: None)
  Receive Date: 20250311
  Receipt Date: 20250311
  Transmission Date: 20250409
  Serious: Yes (Other)
  Sender: INCYTE
  Company Number: CA-EVENT-001940

PATIENT
  Age: 40 Year

DRUGS (1)
  1. OPZELURA [Suspect]
     Active Substance: RUXOLITINIB PHOSPHATE
     Indication: Vitiligo
     Route: 065

REACTIONS (2)
  - Ophthalmic herpes zoster [Unknown]
  - Herpes zoster [Unknown]
